FAERS Safety Report 4878842-8 (Version None)
Quarter: 2006Q1

REPORT INFORMATION
  Report Type: 
  Country: None (occurrence: None)
  Receive Date: 20060112
  Receipt Date: 20060102
  Transmission Date: 20060701
  Serious: Yes (Hospitalization)
  Sender: FDA-Public Use
  Company Number: SE-GLAXOSMITHKLINE-B0405275A

PATIENT

DRUGS (7)
  1. ACETAMINOPHEN [Suspect]
     Route: 048
  2. WARAN [Suspect]
     Route: 048
  3. TRAMADOL HCL [Suspect]
  4. FOSAMAX [Concomitant]
  5. KALCIPOS-D [Concomitant]
  6. PREDNISOLONE [Concomitant]
  7. KONAKION [Concomitant]

REACTIONS (1)
  - PROTHROMBIN LEVEL DECREASED [None]
